FAERS Safety Report 14058031 (Version 1)
Quarter: 2017Q4

REPORT INFORMATION
  Report Type: Report from Study
  Country: None (occurrence: US)
  Receive Date: 20171006
  Receipt Date: 20171006
  Transmission Date: 20180321
  Serious: Yes (Hospitalization, Other)
  Sender: FDA-Public Use
  Company Number: US-ABBVIE-17K-163-2111797-00

PATIENT
  Sex: Male

DRUGS (3)
  1. HUMIRA [Suspect]
     Active Substance: ADALIMUMAB
     Indication: PSORIASIS
     Route: 058
     Dates: start: 200410
  2. HUMIRA [Suspect]
     Active Substance: ADALIMUMAB
     Route: 058
  3. HUMIRA [Suspect]
     Active Substance: ADALIMUMAB
     Route: 058
     Dates: end: 201412

REACTIONS (8)
  - Spinal column stenosis [Not Recovered/Not Resolved]
  - Peripheral nerve injury [Recovering/Resolving]
  - Gastric ulcer helicobacter [Recovered/Resolved]
  - Fall [Not Recovered/Not Resolved]
  - Hepatic cancer [Unknown]
  - Fall [Not Recovered/Not Resolved]
  - Upper limb fracture [Recovered/Resolved]
  - Psoriasis [Not Recovered/Not Resolved]

NARRATIVE: CASE EVENT DATE: 2014
